FAERS Safety Report 4990378-2 (Version None)
Quarter: 2006Q2

REPORT INFORMATION
  Report Type: 
  Country: None (occurrence: None)
  Receive Date: 20060427
  Receipt Date: 20060418
  Transmission Date: 20061013
  Serious: Yes (Hospitalization, Other)
  Sender: FDA-Public Use
  Company Number: FRWYE558218APR06

PATIENT
  Age: 90 Year
  Sex: Female

DRUGS (13)
  1. EFFEXOR XR [Suspect]
     Indication: DEPRESSION
     Dosage: 75 MG TOTAL DAILY, ORAL
     Route: 048
     Dates: end: 20060208
  2. ACTONEL [Suspect]
     Dosage: 35 MG 1X PER Q DAY, ORAL
     Route: 048
     Dates: end: 20060208
  3. KARDEGIC (ACETYLSALICYLATE LYSINE) [Concomitant]
  4. MOPRAL (OMEPAZOLE) [Concomitant]
  5. ZOLPIDEM TARTRATE [Concomitant]
  6. CALCIUM CARBONATE (CALCIUM CARBONATE) [Concomitant]
  7. COLECALCIFEROL (COLECALCIFEROL) [Concomitant]
  8. ACETAMINOPHEN [Concomitant]
  9. FUCUS VESICOLOSUS (FUCUS VESICOLOSUS) [Concomitant]
  10. GLYCEROL (GLYCEROL) [Concomitant]
  11. VASELINE (PARAFFIN SOFT) [Concomitant]
  12. PARAFFIN, LIQUID (PARAFFIN, LIQUID) [Concomitant]
  13. MOVICAL (MACROGOL/POTASSIUM CHLORIDE/SODIUM BICARBONATE/SODIUM CHLORID [Concomitant]

REACTIONS (7)
  - ANAEMIA [None]
  - CIRCULATORY COLLAPSE [None]
  - EPISTAXIS [None]
  - HAEMORRHAGE [None]
  - HYPERTENSION [None]
  - MELAENA [None]
  - RENAL IMPAIRMENT [None]
